FAERS Safety Report 8159288-6 (Version None)
Quarter: 2012Q1

REPORT INFORMATION
  Report Type: 
  Country: None (occurrence: None)
  Receive Date: 20120223
  Receipt Date: 20120213
  Transmission Date: 20120608
  Serious: Yes (Hospitalization)
  Sender: FDA-Public Use
  Company Number: US-VIROPHARMA INCORPORATED-20120213VANCO2651

PATIENT
  Sex: Female

DRUGS (2)
  1. VANCOMYCIN HYDROCHLORIDE [Suspect]
     Dosage: UNKNOWN
     Route: 048
     Dates: start: 20120201
  2. VANCOMYCIN HYDROCHLORIDE [Suspect]
     Indication: CLOSTRIDIAL INFECTION
     Dosage: UNKNOWN
     Route: 048
     Dates: start: 20110501

REACTIONS (6)
  - HEADACHE [None]
  - INFECTION [None]
  - DEPRESSED LEVEL OF CONSCIOUSNESS [None]
  - FATIGUE [None]
  - VOMITING [None]
  - DIARRHOEA [None]
